FAERS Safety Report 5036158-3 (Version None)
Quarter: 2006Q2

REPORT INFORMATION
  Report Type: 
  Country: None (occurrence: None)
  Receive Date: 20060627
  Receipt Date: 20040914
  Transmission Date: 20061013
  Serious: Yes (Death, Hospitalization)
  Sender: FDA-Public Use
  Company Number: US-MERCK-0409USA01264

PATIENT
  Sex: Male

DRUGS (1)
  1. FOSAMAX [Suspect]
     Route: 048

REACTIONS (4)
  - CHRONIC MYELOID LEUKAEMIA [None]
  - JAW DISORDER [None]
  - LEFT VENTRICULAR FAILURE [None]
  - ZYGOMYCOSIS [None]
